FAERS Safety Report 12672673 (Version 1)
Quarter: 2016Q3

REPORT INFORMATION
  Report Type: Spontaneous
  Country: US (occurrence: US)
  Receive Date: 20160822
  Receipt Date: 20160822
  Transmission Date: 20161109
  Serious: No
  Sender: FDA-Public Use
  Company Number: US-JNJFOC-20160716217

PATIENT
  Sex: Male

DRUGS (11)
  1. VITAMIN D [Concomitant]
     Active Substance: CHOLECALCIFEROL
     Indication: ROUTINE HEALTH MAINTENANCE
     Dosage: 2 DROPS, 3-4 YEARS
     Route: 065
  2. ASTAXANTHIN [Concomitant]
     Indication: ROUTINE HEALTH MAINTENANCE
     Route: 065
  3. KRILL OIL [Concomitant]
     Active Substance: DIETARY SUPPLEMENT
     Indication: ROUTINE HEALTH MAINTENANCE
     Dosage: 3-4 YEARS
     Route: 065
  4. DEHYDROEPIANDROSTERONE [Concomitant]
     Active Substance: PRASTERONE
     Indication: BLOOD TESTOSTERONE
     Dosage: 9 TO 12 MONTHS
     Route: 065
  5. MENS ROGAINE EXTRA STRENGTH [Suspect]
     Active Substance: MINOXIDIL
     Indication: ALOPECIA
     Dosage: 3 OR 4 TIMES A WEEK
     Route: 061
  6. VITAMIN C [Concomitant]
     Active Substance: ASCORBIC ACID
     Indication: ROUTINE HEALTH MAINTENANCE
     Route: 065
  7. ANASTROZOLE. [Concomitant]
     Active Substance: ANASTROZOLE
     Indication: BLOOD TESTOSTERONE
     Dosage: 9 TO 12 MONTHS
     Route: 065
  8. ARMOUR THYROID [Concomitant]
     Active Substance: THYROID, PORCINE
     Indication: HYPOTHYROIDISM
     Dosage: 9 TO 12 MONTHS
     Route: 065
  9. MENS ROGAINE EXTRA STRENGTH [Suspect]
     Active Substance: MINOXIDIL
     Route: 061
  10. MERIVA [Concomitant]
     Indication: ROUTINE HEALTH MAINTENANCE
     Dosage: 3-4 YEARS
     Route: 065
  11. UBIQUINOL [Concomitant]
     Active Substance: UBIQUINOL
     Indication: ROUTINE HEALTH MAINTENANCE
     Dosage: 3-4 YEARS
     Route: 065

REACTIONS (4)
  - Hair colour changes [Recovering/Resolving]
  - Product use issue [Recovering/Resolving]
  - Off label use [Recovering/Resolving]
  - Product colour issue [Unknown]

NARRATIVE: CASE EVENT DATE: 2016
